FAERS Safety Report 5849467-2 (Version None)
Quarter: 2008Q3

REPORT INFORMATION
  Report Type: 
  Country: None (occurrence: None)
  Receive Date: 20080819
  Receipt Date: 20080807
  Transmission Date: 20090109
  Serious: Yes (Other)
  Sender: FDA-Public Use
  Company Number: US-JNJFOC-20080802061

PATIENT
  Sex: Male
  Weight: 136.08 kg

DRUGS (3)
  1. FENTANYL TRANSDERMAL SYSTEM [Suspect]
     Indication: BACK PAIN
     Route: 062
  2. EFFEXOR XR [Concomitant]
     Indication: DEPRESSION
     Route: 048
  3. LODINE [Concomitant]
     Indication: INFLAMMATION
     Route: 048

REACTIONS (6)
  - ANXIETY [None]
  - BLOOD CHOLESTEROL ABNORMAL [None]
  - DIABETES MELLITUS [None]
  - FLUID RETENTION [None]
  - GASTRIC DISORDER [None]
  - WRONG TECHNIQUE IN DRUG USAGE PROCESS [None]
